FAERS Safety Report 6781678-4 (Version None)
Quarter: 2010Q2

REPORT INFORMATION
  Report Type: 
  Country: None (occurrence: None)
  Receive Date: 20100617
  Receipt Date: 20100617
  Transmission Date: 20101027
  Serious: Yes (Life-Threatening, Hospitalization)
  Sender: FDA-Public Use
  Company Number: None

PATIENT
  Age: 56 Year
  Sex: Male
  Weight: 113.3993 kg

DRUGS (1)
  1. JANUVIA [Suspect]
     Indication: DIABETES MELLITUS
     Dosage: 1 DAILY
     Dates: start: 20060101, end: 20070901

REACTIONS (3)
  - EARLY RETIREMENT [None]
  - IMPAIRED WORK ABILITY [None]
  - PANCREATITIS [None]
